FAERS Safety Report 14538505 (Version 1)
Quarter: 2018Q1

REPORT INFORMATION
  Report Type: Spontaneous
  Country: FR (occurrence: FR)
  Receive Date: 20180216
  Receipt Date: 20180216
  Transmission Date: 20180509
  Serious: Yes (Other)
  Sender: FDA-Public Use
  Company Number: FR-MERCK KGAA-2042109

PATIENT
  Age: 55 Year
  Sex: Female
  Weight: 50 kg

DRUGS (2)
  1. LEVOTHYROX [Concomitant]
     Active Substance: LEVOTHYROXINE
     Route: 048
     Dates: start: 20170909
  2. NOVOTHYROX [Suspect]
     Active Substance: LEVOTHYROXINE SODIUM
     Indication: HYPOTHYROIDISM
     Route: 048
     Dates: start: 20170419, end: 20170908

REACTIONS (11)
  - Depression [Recovered/Resolved]
  - Blood thyroid stimulating hormone normal [Recovered/Resolved]
  - Vertigo [Recovered/Resolved]
  - Asthenia [Recovered/Resolved]
  - Disturbance in attention [Recovered/Resolved]
  - Pruritus [Recovered/Resolved]
  - Loss of libido [Recovered/Resolved]
  - Depressed mood [Recovered/Resolved]
  - Alopecia [Recovered/Resolved]
  - Amnesia [Recovered/Resolved]
  - Chills [Recovered/Resolved]

NARRATIVE: CASE EVENT DATE: 201707
